FAERS Safety Report 9498587 (Version 1)
Quarter: 2013Q3

REPORT INFORMATION
  Report Type: Spontaneous
  Country: US (occurrence: US)
  Receive Date: 20130904
  Receipt Date: 20130904
  Transmission Date: 20140515
  Serious: No
  Sender: FDA-Public Use
  Company Number: US-PFIZER INC-2013252005

PATIENT
  Age: 73 Year
  Sex: Female
  Weight: 61.22 kg

DRUGS (8)
  1. TIKOSYN [Suspect]
     Indication: ATRIAL FIBRILLATION
     Dosage: 250 UG, 2X/DAY
     Dates: start: 20130820
  2. ACETAZOLAMIDE [Concomitant]
     Dosage: 500 MG, DAILY
  3. WARFARIN [Concomitant]
     Dosage: 2.5 MG, DAILY
  4. DIGOXIN [Concomitant]
     Dosage: 0.125 MG, DAILY
  5. LISINOPRIL [Concomitant]
     Dosage: 5 MG, DAILY
  6. VITAMIN D3 [Concomitant]
     Dosage: 10000 IU, 1X/DAY
  7. CENTRUM SILVER [Concomitant]
     Dosage: 1 DF, DAILY
  8. VITAMIN B-COMPLEX [Concomitant]
     Dosage: UNK

REACTIONS (1)
  - Pyrexia [Recovering/Resolving]
